FAERS Safety Report 9649516 (Version 1)
Quarter: 2013Q4

REPORT INFORMATION
  Report Type: Spontaneous
  Country: US (occurrence: None)
  Receive Date: 20131009
  Receipt Date: 20131009
  Transmission Date: 20140711
  Serious: Yes (Hospitalization, Other)
  Sender: FDA-Public Use
  Company Number: 2013AP005072

PATIENT
  Age: 88 Year
  Sex: Male

DRUGS (6)
  1. DILT-XR [Suspect]
  2. ASPIRIN [Concomitant]
  3. SIMVASTATIN [Concomitant]
  4. LEVODOPA/CARBIDOPA [Concomitant]
  5. METOLAZONE [Concomitant]
  6. TORASEMIDE [Concomitant]

REACTIONS (1)
  - Atrioventricular block complete [None]
